FAERS Safety Report 8257783-2 (Version None)
Quarter: 2012Q2

REPORT INFORMATION
  Report Type: 
  Country: None (occurrence: None)
  Receive Date: 20120404
  Receipt Date: 20120326
  Transmission Date: 20120825
  Serious: No
  Sender: FDA-Public Use
  Company Number: US-BIOGENIDEC-2012BI010396

PATIENT
  Age: 68 Year
  Sex: Female

DRUGS (2)
  1. TYSABRI [Suspect]
     Indication: MULTIPLE SCLEROSIS
     Route: 042
     Dates: start: 20090618, end: 20090813
  2. TYSABRI [Suspect]
     Route: 042
     Dates: start: 20110615, end: 20120201

REACTIONS (3)
  - PAIN IN EXTREMITY [None]
  - CHILLS [None]
  - BACK PAIN [None]
